FAERS Safety Report 15597191 (Version 1)
Quarter: 2018Q4

REPORT INFORMATION
  Report Type: Spontaneous
  Country: US (occurrence: US)
  Receive Date: 20181102
  Receipt Date: 20181102
  Transmission Date: 20190205
  Serious: No
  Sender: FDA-Public Use
  Company Number: None

PATIENT
  Age: 49 Year
  Sex: Female
  Weight: 81.65 kg

DRUGS (2)
  1. XELJANZ XR [Suspect]
     Active Substance: TOFACITINIB CITRATE
     Indication: RHEUMATOID ARTHRITIS
     Route: 048
     Dates: start: 201407
  2. HYDROXYCHLOROQUINE  200 MG TAB [Suspect]
     Active Substance: HYDROXYCHLOROQUINE
     Indication: RHEUMATOID ARTHRITIS
     Dosage: TAKE 2 TABLETS BY MOUTH EVERY DAY WITH YEARLY EYE EXAMS
     Route: 048
     Dates: start: 201707

REACTIONS (2)
  - Product dose omission [None]
  - Pneumonia [None]
